FAERS Safety Report 21979292 (Version 3)
Quarter: 2025Q4

REPORT INFORMATION
  Report Type: Report from Study
  Country: IN (occurrence: IN)
  Receive Date: 20230210
  Receipt Date: 20251031
  Transmission Date: 20260118
  Serious: Yes (Other)
  Sender: TAKEDA
  Company Number: IN-TAKEDA-2023TUS013985

PATIENT
  Age: 33 Year
  Sex: Male

DRUGS (3)
  1. ANTI-INHIBITOR COAGULANT COMPLEX [Suspect]
     Active Substance: ANTI-INHIBITOR COAGULANT COMPLEX
     Indication: Haemophilia
     Dosage: UNK UNK, QD
     Dates: start: 200312
  2. ANTI-INHIBITOR COAGULANT COMPLEX [Suspect]
     Active Substance: ANTI-INHIBITOR COAGULANT COMPLEX
     Dosage: 3500 INTERNATIONAL UNIT, QD
     Dates: start: 201908
  3. ANTI-INHIBITOR COAGULANT COMPLEX [Suspect]
     Active Substance: ANTI-INHIBITOR COAGULANT COMPLEX
     Dosage: UNK UNK, QD

REACTIONS (3)
  - Anti factor VIII antibody positive [Unknown]
  - Drug effect less than expected [Unknown]
  - Head injury [Not Recovered/Not Resolved]

NARRATIVE: CASE EVENT DATE: 20190101
